FAERS Safety Report 19040209 (Version 1)
Quarter: 2021Q1

REPORT INFORMATION
  Report Type: Spontaneous
  Country: SE (occurrence: SE)
  Receive Date: 20210323
  Receipt Date: 20210323
  Transmission Date: 20210420
  Serious: Yes (Other)
  Sender: FDA-Public Use
  Company Number: SE-TEVA-2021-SE-1892225

PATIENT
  Age: 72 Year
  Sex: Male

DRUGS (13)
  1. MOVICOL [Concomitant]
     Active Substance: POLYETHYLENE GLYCOL 3350\POTASSIUM CHLORIDE\SODIUM BICARBONATE\SODIUM CHLORIDE
  2. OMEPRAZOL [Concomitant]
     Active Substance: OMEPRAZOLE
  3. METOPROLOL. [Concomitant]
     Active Substance: METOPROLOL
  4. ALLOPURINOL. [Concomitant]
     Active Substance: ALLOPURINOL
  5. ACETYLSALICYLSYRA [Concomitant]
     Active Substance: ASPIRIN
  6. ZOLEDRONSYRA (ZOLEDRONIC ACID) [Suspect]
     Active Substance: ZOLEDRONIC ACID
     Indication: OSTEOPOROSIS PROPHYLAXIS
     Dosage: 4MG
     Route: 042
     Dates: start: 20210111, end: 20210111
  7. RENITEC COMP [Concomitant]
     Active Substance: ENALAPRIL MALEATE\HYDROCHLOROTHIAZIDE
  8. ZOPIKLON [Concomitant]
     Active Substance: ZOPICLONE
  9. ATORVASTATIN [Concomitant]
     Active Substance: ATORVASTATIN
  10. SERTRALIN [Concomitant]
     Active Substance: SERTRALINE HYDROCHLORIDE
  11. PREDNISOLON [Concomitant]
     Active Substance: PREDNISOLONE
  12. FELODIPIN [Concomitant]
     Active Substance: FELODIPINE
  13. CILAXORAL [Concomitant]
     Active Substance: SODIUM PICOSULFATE

REACTIONS (1)
  - Peripheral swelling [Recovered/Resolved]

NARRATIVE: CASE EVENT DATE: 20210114
